FAERS Safety Report 10267863 (Version 1)
Quarter: 2014Q2

REPORT INFORMATION
  Report Type: Report from Study
  Country: US (occurrence: US)
  Receive Date: 20140630
  Receipt Date: 20140630
  Transmission Date: 20141212
  Serious: Yes (Hospitalization)
  Sender: FDA-Public Use
  Company Number: US-JNJFOC-20140616771

PATIENT
  Age: 14 Year
  Sex: Female
  Weight: 56.7 kg

DRUGS (6)
  1. REMICADE [Suspect]
     Indication: INFLAMMATORY BOWEL DISEASE
     Route: 042
     Dates: start: 20110417, end: 20130328
  2. 6-MERCAPTOPURINE [Concomitant]
     Route: 065
  3. HUMIRA [Concomitant]
     Route: 065
     Dates: start: 20140324
  4. HUMIRA [Concomitant]
     Route: 065
     Dates: start: 20130531, end: 20140103
  5. IBUPROFEN [Concomitant]
     Route: 065
  6. 5-ASA [Concomitant]
     Route: 048

REACTIONS (1)
  - Inflammatory bowel disease [Recovered/Resolved]
